FAERS Safety Report 15659151 (Version 2)
Quarter: 2018Q4

REPORT INFORMATION
  Report Type: Spontaneous
  Country: ES (occurrence: ES)
  Receive Date: 20181127
  Receipt Date: 20181128
  Transmission Date: 20190205
  Serious: Yes (Other)
  Sender: FDA-Public Use
  Company Number: ES-CIPLA LTD.-2018ES22925

PATIENT

DRUGS (4)
  1. LEVOFLOXACIN. [Suspect]
     Active Substance: LEVOFLOXACIN
     Indication: ACUTE SINUSITIS
     Dosage: 1 DF, PER DAY
     Route: 048
     Dates: start: 20181101, end: 20181104
  2. BUDESONIDA [Concomitant]
     Indication: RHINITIS ALLERGIC
     Dosage: 200 ?G, PER DAY
     Route: 048
     Dates: start: 20181101
  3. EBASTINA [Concomitant]
     Active Substance: EBASTINE
     Indication: RHINITIS ALLERGIC
     Dosage: 1 DF, PER DAY
     Route: 048
     Dates: start: 20181101
  4. ATENOLOL NORMON [Concomitant]
     Indication: HYPERTENSION
     Dosage: 1 DF, BID (EVERY 12 HOURS)
     Route: 048
     Dates: start: 20070223

REACTIONS (4)
  - Dizziness [Recovered/Resolved]
  - Anaphylactoid reaction [Recovered/Resolved]
  - Laryngeal oedema [Recovered/Resolved]
  - Vomiting [Recovered/Resolved]

NARRATIVE: CASE EVENT DATE: 20181103
